FAERS Safety Report 13896428 (Version 1)
Quarter: 2017Q3

REPORT INFORMATION
  Report Type: Spontaneous
  Country: US (occurrence: None)
  Receive Date: 20170816
  Receipt Date: 20170816
  Transmission Date: 20171127
  Serious: Yes (Life-Threatening)
  Sender: FDA-Public Use
  Company Number: None

PATIENT
  Age: 75 Year
  Sex: Male
  Weight: 69.85 kg

DRUGS (9)
  1. ACYCLOVIR. [Concomitant]
     Active Substance: ACYCLOVIR
  2. DILTIAZEM. [Concomitant]
     Active Substance: DILTIAZEM
  3. ASPIRIN. [Concomitant]
     Active Substance: ASPIRIN
  4. IBRUTINIB 140 MG CAPS PHARMACYCLICS [Suspect]
     Active Substance: IBRUTINIB
     Indication: CHRONIC LYMPHOCYTIC LEUKAEMIA
     Dosage: 3 CAPS FOR TOTAL DOSE 420 MG DAILY ORAL
     Route: 048
     Dates: start: 201404, end: 20170712
  5. FLOMAX [Concomitant]
     Active Substance: TAMSULOSIN HYDROCHLORIDE
  6. IVIG [Concomitant]
     Active Substance: HUMAN IMMUNOGLOBULIN G
  7. VITAMIN D [Concomitant]
     Active Substance: CHOLECALCIFEROL
  8. FINASTERIDE. [Concomitant]
     Active Substance: FINASTERIDE
  9. TEMAZEPAM. [Concomitant]
     Active Substance: TEMAZEPAM

REACTIONS (8)
  - Hepatitis B reactivation [None]
  - Pneumonia aspiration [None]
  - Aspartate aminotransferase increased [None]
  - Alanine aminotransferase increased [None]
  - Acute hepatic failure [None]
  - Abdominal discomfort [None]
  - Chromaturia [None]
  - Syncope [None]

NARRATIVE: CASE EVENT DATE: 20170721
